FAERS Safety Report 17659185 (Version 2)
Quarter: 2025Q2

REPORT INFORMATION
  Report Type: Report from Study
  Country: SE (occurrence: SE)
  Receive Date: 20200413
  Receipt Date: 20250620
  Transmission Date: 20250717
  Serious: Yes (Life-Threatening, Hospitalization, Other)
  Sender: AUROBINDO
  Company Number: SE-TEVA-2020-SE-1208714

PATIENT
  Age: 58 Year
  Sex: Female

DRUGS (9)
  1. AMLODIPINE [Suspect]
     Active Substance: AMLODIPINE BESYLATE
     Indication: Product used for unknown indication
     Route: 048
  2. BISOPROLOL [Suspect]
     Active Substance: BISOPROLOL
     Indication: Product used for unknown indication
     Route: 048
  3. BISOPROLOL [Suspect]
     Active Substance: BISOPROLOL
     Route: 065
  4. GLUCAGON [Suspect]
     Active Substance: GLUCAGON
     Indication: Cardiac dysfunction
     Route: 065
  5. MIRTAZAPINE [Suspect]
     Active Substance: MIRTAZAPINE
     Indication: Product used for unknown indication
     Route: 065
  6. CITALOPRAM [Suspect]
     Active Substance: CITALOPRAM
     Indication: Product used for unknown indication
     Route: 065
  7. INSULIN NOS [Suspect]
     Active Substance: INSULIN NOS
     Indication: Cardiac dysfunction
     Route: 050
  8. INSULIN NOS [Suspect]
     Active Substance: INSULIN NOS
     Route: 065
  9. DEXTROSE [Concomitant]
     Active Substance: DEXTROSE MONOHYDRATE
     Indication: Diabetes mellitus management
     Route: 050

REACTIONS (5)
  - Cardiac dysfunction [Recovered/Resolved]
  - Respiratory failure [Recovered/Resolved]
  - Non-cardiogenic pulmonary oedema [Recovered/Resolved]
  - Toxicity to various agents [Unknown]
  - Intentional overdose [Unknown]
